FAERS Safety Report 18844417 (Version 1)
Quarter: 2021Q1

REPORT INFORMATION
  Report Type: Report from Study
  Country: US (occurrence: US)
  Receive Date: 20210203
  Receipt Date: 20210203
  Transmission Date: 20210419
  Serious: No
  Sender: FDA-Public Use
  Company Number: US-EXELIXIS-CABO-20030472

PATIENT
  Age: 70 Year
  Sex: Female

DRUGS (13)
  1. AMLODIPINE [Concomitant]
     Active Substance: AMLODIPINE BESYLATE
  2. CABOMETYX [Suspect]
     Active Substance: CABOZANTINIB S-MALATE
     Indication: RENAL CELL CARCINOMA STAGE III
     Dosage: 60 MG, QD
     Dates: start: 201809
  3. ATIVAN [Concomitant]
     Active Substance: LORAZEPAM
  4. LOSARTAN. [Concomitant]
     Active Substance: LOSARTAN
  5. PLAQUENIL [Concomitant]
     Active Substance: HYDROXYCHLOROQUINE SULFATE
  6. OMEPRAZOLE. [Concomitant]
     Active Substance: OMEPRAZOLE
  7. XTAMPZA ER [Concomitant]
     Active Substance: OXYCODONE
  8. PERCOCET [Concomitant]
     Active Substance: ACETAMINOPHEN\OXYCODONE HYDROCHLORIDE
  9. LACTULOSE. [Concomitant]
     Active Substance: LACTULOSE
  10. VISTARIL [Concomitant]
     Active Substance: HYDROXYZINE PAMOATE
  11. LASIX [Concomitant]
     Active Substance: FUROSEMIDE
  12. ASA [Concomitant]
     Active Substance: ASPIRIN
  13. PRAVASTATIN. [Concomitant]
     Active Substance: PRAVASTATIN

REACTIONS (9)
  - Pruritus [Unknown]
  - Scratch [Unknown]
  - Fluid retention [Unknown]
  - Rheumatoid arthritis [Unknown]
  - Skin discolouration [Unknown]
  - Agitation [Unknown]
  - Weight decreased [Recovering/Resolving]
  - Confusional state [Unknown]
  - Blood calcium decreased [Unknown]

NARRATIVE: CASE EVENT DATE: 201809
